FAERS Safety Report 6997625-6 (Version None)
Quarter: 2010Q3

REPORT INFORMATION
  Report Type: 
  Country: None (occurrence: None)
  Receive Date: 20100918
  Receipt Date: 20091111
  Transmission Date: 20110219
  Serious: No
  Sender: FDA-Public Use
  Company Number: US-WYE-H12152109

PATIENT
  Sex: Female
  Weight: 113.5 kg

DRUGS (4)
  1. PREMPRO [Suspect]
     Indication: HORMONE THERAPY
     Dosage: 0.625/2.5MG
     Route: 048
     Dates: start: 20091105
  2. DIAZEPAM [Concomitant]
  3. ASPIRIN [Concomitant]
  4. XANAX [Concomitant]

REACTIONS (2)
  - DRUG INEFFECTIVE [None]
  - HYPERHIDROSIS [None]
